FAERS Safety Report 21494002 (Version 1)
Quarter: 2022Q4

REPORT INFORMATION
  Report Type: Spontaneous
  Country: GB (occurrence: GB)
  Receive Date: 20221021
  Receipt Date: 20221021
  Transmission Date: 20230112
  Serious: Yes (Other)
  Sender: FDA-Public Use
  Company Number: GB-BRISTOL-MYERS SQUIBB COMPANY-2022-116115

PATIENT
  Age: 69 Year
  Sex: Male
  Weight: 84 kg

DRUGS (4)
  1. CARBOPLATIN [Suspect]
     Active Substance: CARBOPLATIN
     Indication: Anal cancer
     Dosage: THE LAST DOSE OF CARBOPLATIN WAS ON 01-JUL-2021
     Route: 065
     Dates: start: 20210115
  2. PACLITAXEL [Suspect]
     Active Substance: PACLITAXEL
     Indication: Anal cancer
     Route: 065
  3. IPILIMUMAB [Suspect]
     Active Substance: IPILIMUMAB
     Indication: Anal cancer
     Dosage: 4 CYCLES, UNIT DOSE : 50 MG, FREQUENCY ; 1 , FREQUENCY TIME : 4 WEEKS,
     Route: 042
  4. NIVOLUMAB [Suspect]
     Active Substance: NIVOLUMAB
     Indication: Anal cancer
     Dosage: 4 CYCLES,  UNIT DOSE : 480 MG, FREQUENCY ; 1 , FREQUENCY TIME : 4 WEEKS,
     Route: 042
     Dates: start: 20210730

REACTIONS (2)
  - Malignant neoplasm progression [Unknown]
  - Off label use [Unknown]

NARRATIVE: CASE EVENT DATE: 20220701
